FAERS Safety Report 4866930-1 (Version None)
Quarter: 2005Q4

REPORT INFORMATION
  Report Type: 
  Country: None (occurrence: None)
  Receive Date: 20051222
  Receipt Date: 20051216
  Transmission Date: 20060501
  Serious: Yes (Hospitalization)
  Sender: FDA-Public Use
  Company Number: 2005158783

PATIENT
  Age: 68 Year
  Sex: Male
  Weight: 73 kg

DRUGS (6)
  1. NORVASC [Suspect]
     Indication: ILL-DEFINED DISORDER
     Dosage: 5 MG (5 MG, DAILY)
  2. ASPIRIN [Suspect]
     Indication: ILL-DEFINED DISORDER
  3. MICARDIS HCT [Suspect]
     Indication: HYPERTENSION
  4. CARVEDILOL [Suspect]
     Indication: ILL-DEFINED DISORDER
     Dosage: 25 MG , (25 MG,  DAILY)
  5. LISINOPRIL [Suspect]
     Indication: ILL-DEFINED DISORDER
     Dosage: 10 MG (10 MG)
  6. ZOCOR [Suspect]
     Indication: ILL-DEFINED DISORDER

REACTIONS (3)
  - BLOOD PRESSURE INCREASED [None]
  - CARDIAC FAILURE [None]
  - MYOCARDIAL INFARCTION [None]
